FAERS Safety Report 21729556 (Version 1)
Quarter: 2022Q4

REPORT INFORMATION
  Report Type: Spontaneous
  Country: AU (occurrence: AU)
  Receive Date: 20221214
  Receipt Date: 20221214
  Transmission Date: 20230112
  Serious: Yes (Hospitalization)
  Sender: FDA-Public Use
  Company Number: AU-MYLANLABS-2022M1139496

PATIENT
  Age: 20 Year
  Sex: Female

DRUGS (13)
  1. ONDANSETRON [Suspect]
     Active Substance: ONDANSETRON
     Indication: Hyperemesis gravidarum
     Dosage: 24 MILLIGRAM, QD
     Route: 065
  2. METOCLOPRAMIDE [Suspect]
     Active Substance: METOCLOPRAMIDE
     Indication: Hyperemesis gravidarum
     Dosage: 30 MILLIGRAM, QD
     Route: 065
  3. OMEPRAZOLE [Suspect]
     Active Substance: OMEPRAZOLE
     Indication: Hyperemesis gravidarum
     Dosage: 20 MILLIGRAM, QD
     Route: 065
  4. HYDROCORTISONE [Suspect]
     Active Substance: HYDROCORTISONE
     Indication: Oculogyric crisis
     Dosage: UNK
     Route: 042
  5. HYDROCORTISONE [Suspect]
     Active Substance: HYDROCORTISONE
     Indication: Akathisia
  6. PROCHLORPERAZINE [Suspect]
     Active Substance: PROCHLORPERAZINE
     Indication: Hyperemesis gravidarum
     Dosage: 12.5 MILLIGRAM, QD (TWO DOSES 12H APART)
     Route: 042
  7. DOXYLAMINE SUCCINATE\PYRIDOXINE HYDROCHLORIDE [Suspect]
     Active Substance: DOXYLAMINE SUCCINATE\PYRIDOXINE HYDROCHLORIDE
     Indication: Hyperemesis gravidarum
     Dosage: UNK UNK, QD (50MG/50MG)
     Route: 065
  8. DEXCHLORPHENIRAMINE [Suspect]
     Active Substance: DEXCHLORPHENIRAMINE
     Indication: Oculogyric crisis
     Dosage: UNK
     Route: 048
  9. DEXCHLORPHENIRAMINE [Suspect]
     Active Substance: DEXCHLORPHENIRAMINE
     Indication: Akathisia
  10. THIAMINE [Suspect]
     Active Substance: THIAMINE
     Indication: Oculogyric crisis
     Dosage: UNK
     Route: 065
  11. THIAMINE [Suspect]
     Active Substance: THIAMINE
     Indication: Akathisia
  12. PREDNISOLONE [Suspect]
     Active Substance: PREDNISOLONE
     Indication: Oculogyric crisis
     Dosage: UNK
     Route: 048
  13. PREDNISOLONE [Suspect]
     Active Substance: PREDNISOLONE
     Indication: Akathisia

REACTIONS (4)
  - Akathisia [Recovered/Resolved]
  - Oculogyric crisis [Recovered/Resolved]
  - Drug ineffective [Unknown]
  - Maternal exposure during pregnancy [Recovered/Resolved]
